FAERS Safety Report 7077379-8 (Version None)
Quarter: 2010Q4

REPORT INFORMATION
  Report Type: 
  Country: None (occurrence: None)
  Receive Date: 20101029
  Receipt Date: 20101029
  Transmission Date: 20110411
  Serious: Yes (Hospitalization)
  Sender: FDA-Public Use
  Company Number: None

PATIENT
  Age: 63 Year
  Sex: Female
  Weight: 95.2554 kg

DRUGS (1)
  1. RECLAST 5 MG/ 100 ML INJECTION [Suspect]

REACTIONS (5)
  - ARTHRALGIA [None]
  - DIALYSIS [None]
  - MYALGIA [None]
  - PAIN IN JAW [None]
  - RENAL FAILURE ACUTE [None]
